FAERS Safety Report 12575618 (Version 1)
Quarter: 2016Q3

REPORT INFORMATION
  Report Type: Other
  Country: TR (occurrence: TR)
  Receive Date: 20160720
  Receipt Date: 20160720
  Transmission Date: 20161109
  Serious: Yes (Hospitalization)
  Sender: FDA-Public Use
  Company Number: TR-WARNER CHILCOTT, LLC-1055296

PATIENT
  Age: 52 Year
  Sex: Female

DRUGS (2)
  1. ALENDRONATE [Suspect]
     Active Substance: ALENDRONATE SODIUM
     Route: 048
  2. ACTONEL [Suspect]
     Active Substance: RISEDRONATE SODIUM
     Route: 048

REACTIONS (8)
  - Myalgia [Unknown]
  - Joint swelling [Unknown]
  - Joint warmth [Unknown]
  - Joint range of motion decreased [Unknown]
  - Joint effusion [Unknown]
  - Polyarthritis [Unknown]
  - Arthralgia [Unknown]
  - Synovitis [Unknown]
